FAERS Safety Report 18909818 (Version 1)
Quarter: 2021Q1

REPORT INFORMATION
  Report Type: Spontaneous
  Country: US (occurrence: US)
  Receive Date: 20210217
  Receipt Date: 20210217
  Transmission Date: 20210420
  Serious: Yes (Hospitalization)
  Sender: FDA-Public Use
  Company Number: None

PATIENT
  Age: 65 Year
  Sex: Male

DRUGS (2)
  1. TORSEMIDE (TORSEMIDE 20MG TAB) [Suspect]
     Active Substance: TORSEMIDE
     Indication: HYPERTENSION
     Dates: start: 20190829
  2. METOLAZONE (METOLAZONE 2.5MG TAB) [Suspect]
     Active Substance: METOLAZONE
     Indication: HYPERTENSION
     Dates: start: 20201106

REACTIONS (3)
  - Hypotension [None]
  - Blood urea increased [None]
  - Blood creatinine increased [None]

NARRATIVE: CASE EVENT DATE: 20201121
